FAERS Safety Report 8491938-7 (Version None)
Quarter: 2012Q3

REPORT INFORMATION
  Report Type: 
  Country: None (occurrence: None)
  Receive Date: 20120706
  Receipt Date: 20120427
  Transmission Date: 20120928
  Serious: No
  Sender: FDA-Public Use
  Company Number: US-GLAXOSMITHKLINE-A0975571A

PATIENT
  Age: 69 Year
  Sex: Male

DRUGS (6)
  1. FLOVENT [Suspect]
     Indication: ASTHMA
     Dosage: 2PUFF IN THE MORNING
     Route: 055
     Dates: start: 20050501
  2. LIPITOR [Concomitant]
  3. METOPROLOL [Concomitant]
  4. MICARDIS HCT [Concomitant]
  5. VENTOLIN HFA [Concomitant]
  6. ASPIRIN [Concomitant]

REACTIONS (3)
  - DYSPNOEA [None]
  - PRODUCT QUALITY ISSUE [None]
  - DRUG INEFFECTIVE [None]
